FAERS Safety Report 9778097 (Version 1)
Quarter: 2013Q4

REPORT INFORMATION
  Report Type: Report from Study
  Country: CA (occurrence: CA)
  Receive Date: 20131223
  Receipt Date: 20131223
  Transmission Date: 20140711
  Serious: Yes (Other)
  Sender: FDA-Public Use
  Company Number: CA-JNJFOC-20131211555

PATIENT
  Age: 57 Year
  Sex: Male
  Weight: 99 kg

DRUGS (14)
  1. REMICADE [Suspect]
     Indication: CROHN^S DISEASE
     Route: 042
     Dates: start: 20110927
  2. REMICADE [Suspect]
     Indication: CROHN^S DISEASE
     Route: 042
     Dates: start: 20131216
  3. GRAVOL [Concomitant]
     Indication: PREMEDICATION
     Route: 048
  4. BENADRYL [Concomitant]
     Indication: PREMEDICATION
     Route: 042
  5. TYLENOL [Concomitant]
     Indication: PREMEDICATION
     Route: 048
  6. SOLUCORTEF [Concomitant]
     Indication: PREMEDICATION
     Route: 042
  7. LANTUS SOLOSTAR [Concomitant]
     Dosage: 3 ML, 100 U/ML??QTY : 5
     Route: 065
     Dates: start: 20130111
  8. NOVORAPID [Concomitant]
     Dosage: 3 ML, INSULIN CART. QTY:5
     Route: 065
     Dates: start: 20130105
  9. NABILONE [Concomitant]
     Dosage: 0.5 MG, CAPS. QTY:30
     Route: 065
     Dates: start: 20130106
  10. GABAPENTIN [Concomitant]
     Dosage: 100 MG CAPS.??QTY 30
     Route: 065
     Dates: start: 20121204
  11. DOCUSATE SODIUM [Concomitant]
     Dosage: 100 MG CAPS??QTY: 60
     Route: 065
     Dates: start: 20131113
  12. CITALOPRAM [Concomitant]
     Dosage: 20 MG TAB
     Route: 065
     Dates: start: 20131018
  13. FUROSEMIDE [Concomitant]
     Dosage: 40MG TAB. QTY:30
     Route: 065
     Dates: start: 20131018
  14. VOLTAREN [Concomitant]
     Dosage: 40MG TAB. QTY:30
     Route: 065
     Dates: start: 20130319

REACTIONS (5)
  - Angina pectoris [Unknown]
  - Headache [Unknown]
  - Nausea [Unknown]
  - Pain in extremity [Unknown]
  - Infusion related reaction [Unknown]
